FAERS Safety Report 18545208 (Version 1)
Quarter: 2020Q4

REPORT INFORMATION
  Report Type: Spontaneous
  Country: DE (occurrence: DE)
  Receive Date: 20201125
  Receipt Date: 20201125
  Transmission Date: 20210114
  Serious: Yes (Other)
  Sender: FDA-Public Use
  Company Number: DE-MYLANLABS-2020M1096164

PATIENT
  Age: 10 Year
  Sex: Female

DRUGS (3)
  1. CALCIUM FOLINATE [Concomitant]
     Active Substance: LEUCOVORIN CALCIUM
     Dosage: 0.12-0.24 MG/KG.UM MTX.6 H
  2. METHOTREXATE. [Suspect]
     Active Substance: METHOTREXATE
     Indication: ACUTE LYMPHOCYTIC LEUKAEMIA
     Dosage: 5 GRAM (INFUSION OF 5 G MTX/24 HOURS )
  3. CALCIUM FOLINATE [Concomitant]
     Active Substance: LEUCOVORIN CALCIUM
     Dosage: 0.05 MG/KG.UM MTX

REACTIONS (7)
  - Vomiting [Recovered/Resolved]
  - Disturbance in attention [Recovered/Resolved]
  - Visual impairment [Recovered/Resolved]
  - Photosensitivity reaction [Recovered/Resolved]
  - Disorientation [Recovered/Resolved]
  - Herpes simplex [Recovered/Resolved]
  - Diarrhoea [Recovered/Resolved]
